FAERS Safety Report 12105531 (Version 1)
Quarter: 2016Q1

REPORT INFORMATION
  Report Type: Spontaneous
  Country: US (occurrence: US)
  Receive Date: 20160223
  Receipt Date: 20160223
  Transmission Date: 20160526
  Serious: Yes (Other)
  Sender: FDA-Public Use
  Company Number: PHHY2016US022659

PATIENT
  Sex: Male

DRUGS (5)
  1. CAPTOPRIL. [Suspect]
     Active Substance: CAPTOPRIL
     Indication: CARDIAC FAILURE CONGESTIVE
     Route: 065
  2. ELECTROLYTES NOS [Concomitant]
     Active Substance: ELECTROLYTES NOS
     Indication: PRODUCT USED FOR UNKNOWN INDICATION
     Route: 065
  3. FUROSEMIDE. [Suspect]
     Active Substance: FUROSEMIDE
     Indication: CARDIAC FAILURE CONGESTIVE
     Route: 065
  4. DIGOXIN. [Suspect]
     Active Substance: DIGOXIN
     Indication: CARDIAC FAILURE CONGESTIVE
     Dosage: 0.5 NG/ML, UNK
     Route: 042
  5. POTASSIUM CHLORIDE. [Suspect]
     Active Substance: POTASSIUM CHLORIDE
     Indication: HYPOKALAEMIA
     Route: 042

REACTIONS (12)
  - Urine output decreased [Recovering/Resolving]
  - Urine sodium decreased [Recovered/Resolved]
  - Toxicity to various agents [Recovering/Resolving]
  - Urine potassium increased [Recovered/Resolved]
  - Therapeutic response decreased [Unknown]
  - Cardioactive drug level increased [Recovering/Resolving]
  - Nodal arrhythmia [Recovering/Resolving]
  - Hypernatraemia [Recovering/Resolving]
  - Blood urea increased [Recovering/Resolving]
  - Heart rate decreased [Recovering/Resolving]
  - Hypokalaemia [Recovered/Resolved]
  - Hyperaldosteronism [Recovered/Resolved]
